FAERS Safety Report 7802929-0 (Version None)
Quarter: 2011Q4

REPORT INFORMATION
  Report Type: 
  Country: None (occurrence: None)
  Receive Date: 20111007
  Receipt Date: 20111004
  Transmission Date: 20120403
  Serious: Yes (Life-Threatening, Disabling)
  Sender: FDA-Public Use
  Company Number: GB-ELI_LILLY_AND_COMPANY-GB201110000870

PATIENT
  Age: 70 Year
  Sex: Female

DRUGS (1)
  1. PEMETREXED [Suspect]
     Dosage: UNK, UNKNOWN

REACTIONS (1)
  - CEREBRAL HAEMORRHAGE [None]
